FAERS Safety Report 8164036-X (Version None)
Quarter: 2012Q1

REPORT INFORMATION
  Report Type: 
  Country: None (occurrence: None)
  Receive Date: 20120224
  Receipt Date: 20120216
  Transmission Date: 20120608
  Serious: Yes (Other)
  Sender: FDA-Public Use
  Company Number: PHHY2011GR43449

PATIENT
  Age: 26 Year
  Sex: Male

DRUGS (1)
  1. EXTAVIA [Suspect]

REACTIONS (3)
  - MULTIPLE SCLEROSIS [None]
  - GAIT DISTURBANCE [None]
  - FATIGUE [None]
